FAERS Safety Report 4705205-8 (Version None)
Quarter: 2005Q2

REPORT INFORMATION
  Report Type: 
  Country: None (occurrence: None)
  Receive Date: 20050628
  Receipt Date: 20050617
  Transmission Date: 20051028
  Serious: Yes (Life-Threatening)
  Sender: FDA-Public Use
  Company Number: 11570

PATIENT
  Age: 52 Year
  Sex: Male

DRUGS (1)
  1. AMIODARONE HCL [Suspect]
     Indication: ATRIAL FIBRILLATION
     Dosage: 300 MG ONCE, IV
     Route: 042
     Dates: start: 20050529, end: 20050529

REACTIONS (4)
  - HYPERHIDROSIS [None]
  - HYPOTENSION [None]
  - NO REACTION ON PREVIOUS EXPOSURE TO DRUG [None]
  - SKIN DISCOLOURATION [None]
